FAERS Safety Report 5213493-7 (Version None)
Quarter: 2007Q1

REPORT INFORMATION
  Report Type: 
  Country: None (occurrence: None)
  Receive Date: 20070119
  Receipt Date: 20070110
  Transmission Date: 20070707
  Serious: Yes (Hospitalization)
  Sender: FDA-Public Use
  Company Number: FR-ROCHE-423533

PATIENT
  Age: 41 Year
  Sex: Female
  Weight: 68 kg

DRUGS (9)
  1. PEG-INTERFERON ALFA 2A (RO 25-8310) [Suspect]
     Route: 058
     Dates: start: 20050111, end: 20050511
  2. RIBAVIRIN [Suspect]
     Route: 048
     Dates: start: 20050111, end: 20050511
  3. PRIMPERAN [Concomitant]
     Dates: start: 20050515, end: 20050515
  4. ACETAMINOPHEN W/ PROPOXYPHENE HCL [Concomitant]
     Dates: start: 20050515, end: 20050515
  5. LEVOTHYROXINE SODIUM [Concomitant]
  6. NOCTRAN [Concomitant]
  7. PROZAC [Concomitant]
  8. NEXIUM [Concomitant]
     Dates: start: 20050209
  9. GAVISCON [Concomitant]
     Dates: start: 20050209

REACTIONS (1)
  - RAYNAUD'S PHENOMENON [None]
